FAERS Safety Report 7417486 (Version 23)
Quarter: 2014Q3

REPORT INFORMATION
  Report Type: Spontaneous
  Country: US (occurrence: US)
  Receive Date: 20100611
  Receipt Date: 20140908
  Transmission Date: 20150326
  Serious: Yes (Death, Hospitalization, Other)
  Sender: FDA-Public Use
  Company Number: PHEH2010US03466

PATIENT
  Age: 51 Year
  Sex: Female
  Weight: 69.84 kg

DRUGS (41)
  1. EFFEXOR [Concomitant]
     Active Substance: VENLAFAXINE HYDROCHLORIDE
  2. KEFLEX [Concomitant]
     Active Substance: CEPHALEXIN
     Dosage: 500 MG, TID
     Route: 048
  3. INSULIN [Concomitant]
     Active Substance: INSULIN NOS
  4. FLUDROCORTISONE [Concomitant]
     Active Substance: FLUDROCORTISONE
  5. PERCOCET [Concomitant]
     Active Substance: ACETAMINOPHEN\OXYCODONE HYDROCHLORIDE
  6. HYDRALAZINE [Concomitant]
     Active Substance: HYDRALAZINE HYDROCHLORIDE
  7. DROPERIDOL. [Concomitant]
     Active Substance: DROPERIDOL
     Dosage: 5 MG, UNK
     Route: 065
  8. METOPROLOL TARTRATE. [Concomitant]
     Active Substance: METOPROLOL TARTRATE
     Dosage: 5 MG, UNK
     Route: 042
  9. NEOSTIGMINE METHYLSULFATE. [Concomitant]
     Active Substance: NEOSTIGMINE METHYLSULFATE
     Dosage: 10 MG, UNK
     Route: 065
  10. MIDAZOLAM HYDROCHLORIDE. [Concomitant]
     Active Substance: MIDAZOLAM HYDROCHLORIDE
     Dosage: 2 MG, UNK
     Route: 065
  11. FAMOTIDINE. [Concomitant]
     Active Substance: FAMOTIDINE
     Route: 042
  12. VELCADE [Concomitant]
     Active Substance: BORTEZOMIB
  13. ZOMETA [Suspect]
     Active Substance: ZOLEDRONIC ACID
     Indication: BONE DISORDER
     Dosage: 4 MG, QMO
     Route: 041
     Dates: start: 200505, end: 20080616
  14. OXYCONTIN [Concomitant]
     Active Substance: OXYCODONE HYDROCHLORIDE
  15. FLEXERIL [Concomitant]
     Active Substance: CYCLOBENZAPRINE HYDROCHLORIDE
  16. NEURONTIN [Concomitant]
     Active Substance: GABAPENTIN
  17. CLINDAMYCIN [Concomitant]
     Active Substance: CLINDAMYCIN\CLINDAMYCIN PHOSPHATE
     Dosage: 600 MG, UNK
  18. CARVEDILOL. [Concomitant]
     Active Substance: CARVEDILOL
     Dosage: 3.125 MG, BID
     Route: 048
  19. VENLAFAXINE HYDROCHLORIDE. [Concomitant]
     Active Substance: VENLAFAXINE HYDROCHLORIDE
     Dosage: 75 MG, QD
     Route: 048
  20. CARVEDIOL [Concomitant]
     Active Substance: CARVEDILOL
  21. ETOMIDATE. [Concomitant]
     Active Substance: ETOMIDATE
     Dosage: 40 MG, UNK
     Route: 042
  22. ACETYLCYSTEINE. [Concomitant]
     Active Substance: ACETYLCYSTEINE
     Dosage: 600 MG, BID
     Route: 048
  23. KEPPRA [Concomitant]
     Active Substance: LEVETIRACETAM
  24. COREG [Concomitant]
     Active Substance: CARVEDILOL
  25. CEFAZOLIN SODIUM. [Concomitant]
     Active Substance: CEFAZOLIN SODIUM
     Dosage: 1000 MG, UNK
     Route: 042
  26. FENTANYL CITRATE. [Concomitant]
     Active Substance: FENTANYL CITRATE
     Dosage: 250 UG, UNK
     Route: 065
  27. LOVENOX [Concomitant]
     Active Substance: ENOXAPARIN SODIUM
     Dosage: 1 MG, QD
     Route: 048
  28. ARANESP [Concomitant]
     Active Substance: DARBEPOETIN ALFA
     Dosage: UNK UKN, QW3
     Route: 065
  29. THALIDOMIDE [Suspect]
     Active Substance: THALIDOMIDE
     Indication: PLASMA CELL MYELOMA
  30. REVLIMID [Concomitant]
     Active Substance: LENALIDOMIDE
  31. DEXAMETHASONE SODIUM PHOSPHATE [Concomitant]
     Active Substance: DEXAMETHASONE SODIUM PHOSPHATE
     Dosage: 4 MG, UNK
     Route: 065
  32. DALTEPARIN [Concomitant]
     Active Substance: DALTEPARIN
     Dosage: 0.24 ML, Q12H
     Route: 058
  33. ZOLPIDEM [Concomitant]
     Active Substance: ZOLPIDEM\ZOLPIDEM TARTRATE
     Dosage: 5 MG, QHS
     Route: 048
  34. WARFARIN [Concomitant]
     Active Substance: WARFARIN
  35. LISINOPRIL. [Concomitant]
     Active Substance: LISINOPRIL
     Dosage: 10 MG, UNK
     Route: 048
  36. PERIDEX [Concomitant]
     Active Substance: CHLORHEXIDINE GLUCONATE
  37. LASIX [Concomitant]
     Active Substance: FUROSEMIDE
     Dosage: 40 MG, PRN
     Route: 048
  38. LORTAB [Concomitant]
     Active Substance: ACETAMINOPHEN\HYDROCODONE BITARTRATE
  39. METRONIDAZOLE. [Concomitant]
     Active Substance: METRONIDAZOLE
     Dosage: 500 MG, Q8H
  40. ZOSYN [Concomitant]
     Active Substance: PIPERACILLIN SODIUM\TAZOBACTAM SODIUM
  41. UNASYN [Concomitant]
     Active Substance: AMPICILLIN SODIUM\SULBACTAM SODIUM

REACTIONS (102)
  - Syncope [Unknown]
  - Pain [Unknown]
  - Bone lesion [Unknown]
  - Hypoxia [Unknown]
  - Left ventricular hypertrophy [Unknown]
  - Mitral valve incompetence [Unknown]
  - Dehydration [Unknown]
  - Bone deformity [Unknown]
  - Intervertebral disc protrusion [Unknown]
  - Musculoskeletal stiffness [Unknown]
  - Clostridium difficile colitis [Recovering/Resolving]
  - Neck injury [Unknown]
  - Loss of consciousness [Unknown]
  - Cardiac failure congestive [Unknown]
  - Dyspnoea [Unknown]
  - Osteonecrosis of jaw [Unknown]
  - Physical disability [Unknown]
  - Osteomyelitis acute [Unknown]
  - Mastication disorder [Unknown]
  - Dental caries [Unknown]
  - Rib fracture [Unknown]
  - Osteoarthritis [Unknown]
  - Diastolic dysfunction [Unknown]
  - Peripheral vascular disorder [Unknown]
  - Meningioma [Unknown]
  - Sepsis [Unknown]
  - Metabolic encephalopathy [Unknown]
  - Jaw fracture [Unknown]
  - Osteolysis [Unknown]
  - Breath odour [Unknown]
  - Gastrooesophageal reflux disease [Unknown]
  - Blood immunoglobulin G decreased [Unknown]
  - Hypertension [Unknown]
  - Clostridium difficile infection [Unknown]
  - Mental status changes [Unknown]
  - Lymphadenopathy [Unknown]
  - Depression [Unknown]
  - Head injury [Unknown]
  - Hypotension [Recovered/Resolved]
  - Anxiety [Unknown]
  - Exposed bone in jaw [Unknown]
  - Abscess jaw [Unknown]
  - Emphysema [Unknown]
  - Peripheral swelling [Unknown]
  - Tricuspid valve incompetence [Unknown]
  - Azotaemia [Unknown]
  - Intervertebral disc disorder [Unknown]
  - Thrombocytopenia [Unknown]
  - Faecal incontinence [Unknown]
  - Coronary artery disease [Unknown]
  - Fatigue [Recovering/Resolving]
  - Injury [Unknown]
  - Loose tooth [Unknown]
  - Pulmonary oedema [Unknown]
  - Urinary tract infection [Recovered/Resolved]
  - Somnolence [Unknown]
  - Skin ulcer [Unknown]
  - Death [Fatal]
  - Tooth loss [Unknown]
  - Plasma cell myeloma [Unknown]
  - Bone cancer [Unknown]
  - Synovial cyst [Unknown]
  - Deep vein thrombosis [Unknown]
  - Convulsion [Unknown]
  - Back pain [Unknown]
  - Paraesthesia [Unknown]
  - Essential thrombocythaemia [Unknown]
  - Bacterial infection [Unknown]
  - Bradycardia [Unknown]
  - Bence Jones proteinuria [Unknown]
  - Lumbar spinal stenosis [Unknown]
  - Intervertebral disc degeneration [Unknown]
  - Pneumonia [Unknown]
  - Compression fracture [Unknown]
  - Infection [Unknown]
  - Osteoradionecrosis [Unknown]
  - Atelectasis [Unknown]
  - Cellulitis [Unknown]
  - Neuropathy peripheral [Unknown]
  - Cardiomyopathy [Unknown]
  - Haematoma [Unknown]
  - Respiratory failure [Unknown]
  - Pleural effusion [Unknown]
  - Metastases to spine [Unknown]
  - Kyphosis [Unknown]
  - Cushingoid [Unknown]
  - Exostosis [Unknown]
  - Bone cyst [Unknown]
  - Emotional distress [Unknown]
  - Deformity [Unknown]
  - Plasmacytoma [Unknown]
  - Anaemia [Unknown]
  - Renal failure chronic [Unknown]
  - Tibia fracture [Unknown]
  - Nerve root compression [Unknown]
  - Nasal polyps [Unknown]
  - Chronic sinusitis [Unknown]
  - Haemangioma [Unknown]
  - Renal atrophy [Unknown]
  - Abdominal pain [Unknown]
  - Hypocalcaemia [Unknown]
  - Osteosclerosis [Unknown]

NARRATIVE: CASE EVENT DATE: 200505
